FAERS Safety Report 18946706 (Version 2)
Quarter: 2021Q1

REPORT INFORMATION
  Report Type: Spontaneous
  Country: DE (occurrence: DE)
  Receive Date: 20210226
  Receipt Date: 20210309
  Transmission Date: 20210420
  Serious: Yes (Other)
  Sender: FDA-Public Use
  Company Number: DE-BAYER-2021-086283

PATIENT
  Age: 54 Year
  Sex: Male
  Weight: 72 kg

DRUGS (1)
  1. BETAFERON [Suspect]
     Active Substance: INTERFERON BETA-1B
     Dosage: 250 ?G, QOD
     Dates: start: 2012

REACTIONS (1)
  - Laryngeal cancer recurrent [Not Recovered/Not Resolved]

NARRATIVE: CASE EVENT DATE: 202102
